FAERS Safety Report 8983451 (Version 2)
Quarter: 2013Q1

REPORT INFORMATION
  Report Type: Spontaneous
  Country: US (occurrence: US)
  Receive Date: 20121224
  Receipt Date: 20130214
  Transmission Date: 20140127
  Serious: Yes (Hospitalization)
  Sender: FDA-Public Use
  Company Number: US-BIOGENIDEC-2012BI062032

PATIENT
  Age: 44 Year
  Sex: Male

DRUGS (1)
  1. AVONEX [Suspect]
     Indication: MULTIPLE SCLEROSIS
     Route: 030
     Dates: start: 20110727

REACTIONS (5)
  - Abasia [Recovered/Resolved]
  - Anxiety [Unknown]
  - Blood glucose increased [Recovered/Resolved]
  - Local swelling [Recovered/Resolved]
  - Hypersensitivity [Recovered/Resolved]
